FAERS Safety Report 4490830-2 (Version None)
Quarter: 2004Q4

REPORT INFORMATION
  Report Type: 
  Country: None (occurrence: None)
  Receive Date: 20041027
  Receipt Date: 20041018
  Transmission Date: 20050328
  Serious: No
  Sender: FDA-Public Use
  Company Number: 2003SE03843

PATIENT
  Age: 39 Year
  Sex: Female

DRUGS (3)
  1. ESOMEPRAZOLE [Suspect]
     Indication: GASTROINTESTINAL DISORDER
     Dosage: 40 MG BID PO
     Route: 048
     Dates: start: 20030818, end: 20030825
  2. BREXIDOL [Concomitant]
  3. BALANCE NOVUM [Concomitant]

REACTIONS (8)
  - ABNORMAL SENSATION IN EYE [None]
  - ASTIGMATISM [None]
  - BLINDNESS TRANSIENT [None]
  - DIARRHOEA [None]
  - FATIGUE [None]
  - HETEROPHORIA [None]
  - HYPERHIDROSIS [None]
  - MYOPIA [None]
